FAERS Safety Report 17457021 (Version 2)
Quarter: 2020Q2

REPORT INFORMATION
  Report Type: Report from Study
  Country: US (occurrence: US)
  Receive Date: 20200225
  Receipt Date: 20200605
  Transmission Date: 20200713
  Serious: No
  Sender: FDA-Public Use
  Company Number: US-SA-2020SA047984

PATIENT

DRUGS (8)
  1. TRIAMCINOLONE [Concomitant]
     Active Substance: TRIAMCINOLONE
  2. PREDNISOLONE. [Concomitant]
     Active Substance: PREDNISOLONE
  3. EXELDERM [Concomitant]
     Active Substance: SULCONAZOLE NITRATE
  4. DUPILUMAB [Suspect]
     Active Substance: DUPILUMAB
     Dosage: 300 MG, QOW
     Route: 058
     Dates: start: 20191123
  5. NAPROXEN. [Concomitant]
     Active Substance: NAPROXEN
     Dosage: UNK MG
  6. ATORVASTATIN [Concomitant]
     Active Substance: ATORVASTATIN
  7. ORPHENADRINE [ORPHENADRINE HYDROCHLORIDE] [Concomitant]
  8. FLUOCINONIDE. [Concomitant]
     Active Substance: FLUOCINONIDE

REACTIONS (2)
  - Unevaluable event [Not Recovered/Not Resolved]
  - Pruritus [Not Recovered/Not Resolved]

NARRATIVE: CASE EVENT DATE: 20200219
